FAERS Safety Report 13133978 (Version 1)
Quarter: 2017Q1

REPORT INFORMATION
  Report Type: Spontaneous
  Country: US (occurrence: US)
  Receive Date: 20170120
  Receipt Date: 20170120
  Transmission Date: 20170428
  Serious: Yes (Hospitalization)
  Sender: FDA-Public Use
  Company Number: None

PATIENT
  Age: 50 Year
  Sex: Female
  Weight: 51 kg

DRUGS (1)
  1. LIPOSOMAL DOXORUBICIN [Suspect]
     Active Substance: DOXORUBICIN HYDROCHLORIDE
     Dates: end: 20170112

REACTIONS (3)
  - Vomiting [None]
  - Abdominal pain [None]
  - Leukocytosis [None]

NARRATIVE: CASE EVENT DATE: 20170113
